FAERS Safety Report 6128206-4 (Version None)
Quarter: 2009Q1

REPORT INFORMATION
  Report Type: 
  Country: None (occurrence: None)
  Receive Date: 20090320
  Receipt Date: 20090320
  Transmission Date: 20090719
  Serious: Yes (Other)
  Sender: FDA-Public Use
  Company Number: None

PATIENT
  Sex: Male
  Weight: 83.0083 kg

DRUGS (1)
  1. ANDRODERM [Suspect]
     Indication: BLOOD TESTOSTERONE DECREASED
     Dosage: 5MG/DAY PATCH QD TRANSDERMAL
     Route: 062
     Dates: start: 20090119, end: 20090316

REACTIONS (3)
  - HYPERSENSITIVITY [None]
  - INFLAMMATION [None]
  - PRODUCT QUALITY ISSUE [None]
